FAERS Safety Report 4299487-7 (Version None)
Quarter: 2004Q1

REPORT INFORMATION
  Report Type: 
  Country: None (occurrence: None)
  Receive Date: 20040219
  Receipt Date: 20040213
  Transmission Date: 20041129
  Serious: Yes (Life-Threatening)
  Sender: FDA-Public Use
  Company Number: FR-GLAXOSMITHKLINE-B0323326A

PATIENT
  Age: 53 Year
  Sex: Female

DRUGS (4)
  1. AUGMENTIN [Suspect]
     Indication: PROPHYLAXIS
     Dosage: 2G SINGLE DOSE
     Route: 042
     Dates: start: 20030301, end: 20030301
  2. TRACRIUM [Suspect]
     Indication: INDUCTION OF ANAESTHESIA
     Dosage: 1UNIT SINGLE DOSE
     Route: 042
     Dates: start: 20030301, end: 20030301
  3. NESDONAL [Suspect]
     Indication: INDUCTION OF ANAESTHESIA
     Dosage: 1UNIT SINGLE DOSE
     Route: 042
     Dates: start: 20030301, end: 20030301
  4. SUFENTA [Suspect]
     Indication: INDUCTION OF ANAESTHESIA
     Dosage: 1UNIT SINGLE DOSE
     Route: 042
     Dates: start: 20030301, end: 20030301

REACTIONS (3)
  - ANAESTHETIC COMPLICATION [None]
  - ANAPHYLACTIC SHOCK [None]
  - BRONCHOSPASM [None]
